FAERS Safety Report 6120171-9 (Version None)
Quarter: 2009Q1

REPORT INFORMATION
  Report Type: 
  Country: None (occurrence: None)
  Receive Date: 20090316
  Receipt Date: 20090219
  Transmission Date: 20090719
  Serious: Yes (Hospitalization)
  Sender: FDA-Public Use
  Company Number: US-ABBOTT-09P-163-0558422-00

PATIENT
  Sex: Male

DRUGS (2)
  1. TRILIPIX [Suspect]
     Indication: BLOOD CHOLESTEROL INCREASED
     Dosage: CAN'T RECALL STRENGTH
     Route: 048
     Dates: start: 20090101, end: 20090101
  2. COUMADIN [Suspect]
     Indication: ATRIAL FIBRILLATION
     Dosage: CAN'T RECALL STRENGTH

REACTIONS (1)
  - INTERNATIONAL NORMALISED RATIO INCREASED [None]
